FAERS Safety Report 7354965-9 (Version None)
Quarter: 2011Q1

REPORT INFORMATION
  Report Type: 
  Country: None (occurrence: None)
  Receive Date: 20110316
  Receipt Date: 20110311
  Transmission Date: 20110831
  Serious: Yes (Hospitalization)
  Sender: FDA-Public Use
  Company Number: DE-SANOFI-AVENTIS-2011SA015129

PATIENT
  Age: 74 Year
  Sex: Male

DRUGS (6)
  1. DOCETAXEL [Suspect]
     Route: 041
     Dates: start: 20110128, end: 20110128
  2. CARBOPLATIN [Concomitant]
     Route: 041
     Dates: start: 20110128, end: 20110128
  3. DOCETAXEL [Suspect]
     Route: 041
     Dates: start: 20110218, end: 20110218
  4. DOCETAXEL [Suspect]
     Indication: NON-SMALL CELL LUNG CANCER
     Route: 041
     Dates: start: 20110107, end: 20110107
  5. CARBOPLATIN [Concomitant]
     Indication: NON-SMALL CELL LUNG CANCER
     Route: 041
     Dates: start: 20110107, end: 20110107
  6. CARBOPLATIN [Concomitant]
     Route: 041
     Dates: start: 20110218, end: 20110218

REACTIONS (3)
  - PAIN IN EXTREMITY [None]
  - ILIAC ARTERY OCCLUSION [None]
  - GAIT DISTURBANCE [None]
